FAERS Safety Report 7333015 (Version 6)
Quarter: 2014Q1

REPORT INFORMATION
  Report Type: Spontaneous
  Country: DK (occurrence: DK)
  Receive Date: 20100326
  Receipt Date: 20140103
  Transmission Date: 20141002
  Serious: Yes (Disabling)
  Sender: FDA-Public Use
  Company Number: DK-BAYER-200927399GPV

PATIENT
  Age: 37 Year
  Sex: Female
  Weight: 49 kg

DRUGS (9)
  1. MAGNEVIST [Suspect]
     Indication: SCAN WITH CONTRAST
     Dosage: 15 ML (DAILY DOSE), ONCE,
     Dates: start: 20050509, end: 20050509
  2. MAGNEVIST [Suspect]
     Indication: PITUITARY ENLARGEMENT
     Dosage: 15 ML, ONCE
     Route: 042
     Dates: start: 20070125, end: 20070125
  3. GADOVIST [Suspect]
     Indication: SCAN WITH CONTRAST
     Dosage: 5 ML (DAILY DOSE), ONCE, INTRAVENOUS
     Route: 042
     Dates: start: 20080131, end: 20080131
  4. GADOVIST [Suspect]
     Indication: PITUITARY ENLARGEMENT
  5. GADOLINIUM IN UNSPECIFIED DRUG [Suspect]
     Indication: SCAN WITH CONTRAST
     Dosage: UNK
     Route: 042
     Dates: start: 20060428
  6. OMNISCAN [Suspect]
     Indication: PRODUCT USED FOR UNKNOWN INDICATION
     Dosage: 15 ML
     Route: 042
  7. FERUCARBOTRAN [Suspect]
     Indication: LIVER DISORDER
     Dosage: UNK
     Dates: start: 20070816, end: 20070816
  8. PERSANTIN [Concomitant]
  9. TRADOLAN [Concomitant]

REACTIONS (5)
  - Nephrogenic systemic fibrosis [Not Recovered/Not Resolved]
  - Eczema [Not Recovered/Not Resolved]
  - Arthropathy [Not Recovered/Not Resolved]
  - Photosensitivity reaction [Unknown]
  - Blister [Unknown]
